FAERS Safety Report 7543335-6 (Version None)
Quarter: 2011Q2

REPORT INFORMATION
  Report Type: 
  Country: None (occurrence: None)
  Receive Date: 20110613
  Receipt Date: 20110531
  Transmission Date: 20111010
  Serious: Yes (Hospitalization, Disabling, Other)
  Sender: FDA-Public Use
  Company Number: US-CELGENEUS-163-21880-11050544

PATIENT
  Sex: Male
  Weight: 99.8 kg

DRUGS (5)
  1. REVLIMID [Suspect]
     Indication: MULTIPLE MYELOMA
     Dosage: 25 MILLIGRAM
     Route: 048
     Dates: start: 20100701
  2. ZOMETA [Suspect]
     Route: 065
  3. DEXAMETHASONE [Concomitant]
     Indication: MULTIPLE MYELOMA
     Route: 065
     Dates: start: 20100701
  4. ASPIRIN [Concomitant]
     Route: 065
     Dates: start: 20100701
  5. REVLIMID [Suspect]
     Dosage: 15 MILLIGRAM
     Route: 048
     Dates: start: 20101009, end: 20110401

REACTIONS (4)
  - INFECTION [None]
  - PANCYTOPENIA [None]
  - OSTEONECROSIS OF JAW [None]
  - MULTIPLE MYELOMA [None]
